FAERS Safety Report 7436942-2 (Version None)
Quarter: 2011Q2

REPORT INFORMATION
  Report Type: 
  Country: None (occurrence: None)
  Receive Date: 20110418
  Receipt Date: 20110405
  Transmission Date: 20111010
  Serious: Yes (Other)
  Sender: FDA-Public Use
  Company Number: 2011AP000660

PATIENT
  Age: 64 Year
  Sex: Female

DRUGS (10)
  1. GLICLAZIDE (GLICLAZIDE) [Suspect]
     Indication: DIABETES MELLITUS
     Dosage: 160 MG, PO
     Route: 048
     Dates: start: 20110305
  2. BEDROFLUAZIDE [Concomitant]
  3. PIOGLITAZONE [Concomitant]
  4. CLARITHROMYCIN [Suspect]
     Indication: LOWER RESPIRATORY TRACT INFECTION
     Dosage: 1GM, PO
     Route: 048
     Dates: start: 20110318
  5. ESCITALOPRAM [Concomitant]
  6. RAMIPRIL [Concomitant]
  7. MEBEVERINE HYDROCHLORIDE [Concomitant]
  8. METFORMIN [Concomitant]
  9. SIMVASTATIN [Concomitant]
  10. LANSOPRAZOLE [Concomitant]

REACTIONS (3)
  - DRUG INTERACTION [None]
  - HYPOGLYCAEMIA [None]
  - LOWER RESPIRATORY TRACT INFECTION [None]
